FAERS Safety Report 11126191 (Version 2)
Quarter: 2015Q2

REPORT INFORMATION
  Report Type: Spontaneous
  Country: US (occurrence: US)
  Receive Date: 20150520
  Receipt Date: 20150626
  Transmission Date: 20150821
  Serious: Yes (Death, Hospitalization, Other)
  Sender: FDA-Public Use
  Company Number: US-PFIZER INC-2015105579

PATIENT
  Age: 67 Year
  Sex: Female

DRUGS (20)
  1. OXYBUTYNIN CHLORIDE. [Concomitant]
     Active Substance: OXYBUTYNIN CHLORIDE
     Dosage: 5 MG, 3X/DAY
     Route: 048
     Dates: start: 20130507
  2. VASOTEC [Concomitant]
     Active Substance: ENALAPRIL MALEATE
     Dosage: 10MG HALF TABLET, 2XDAY
     Route: 048
     Dates: start: 20120530
  3. MACITENTAN [Concomitant]
     Active Substance: MACITENTAN
     Dosage: UNK
  4. REVATIO [Suspect]
     Active Substance: SILDENAFIL CITRATE
     Indication: PULMONARY ARTERIAL HYPERTENSION
     Dosage: 20 MG, 3X/DAY
     Route: 048
     Dates: start: 20130507, end: 20150515
  5. LASIX [Concomitant]
     Active Substance: FUROSEMIDE
     Dosage: 80 MG, 2X/DAY
     Route: 048
     Dates: start: 20130507
  6. LEVOTHYROXINE [Concomitant]
     Active Substance: LEVOTHYROXINE
     Dosage: 125 ?G, DAILY
     Route: 048
     Dates: start: 20120531
  7. OPSUMIT [Concomitant]
     Active Substance: MACITENTAN
     Dosage: 10 MG, DAILY
     Route: 048
     Dates: start: 20131212
  8. OXYGEN. [Concomitant]
     Active Substance: OXYGEN
     Dosage: 5 TO 6 L/MIN
     Route: 045
     Dates: start: 20100920
  9. ASPIRIN. [Concomitant]
     Active Substance: ASPIRIN
     Dosage: 325 MG, DAILY
     Route: 048
     Dates: start: 20130507
  10. INSULIN GLARGINE [Concomitant]
     Active Substance: INSULIN GLARGINE
     Dosage: 300 UNIT/3 ML, 10 UNITS, 1X/DAY
     Route: 058
     Dates: start: 20110906
  11. CYCLOBENZAPRINE [Concomitant]
     Active Substance: CYCLOBENZAPRINE
     Dosage: 5 MG, DAILY
     Route: 048
     Dates: start: 20140415
  12. REQUIP [Concomitant]
     Active Substance: ROPINIROLE HYDROCHLORIDE
     Dosage: 0.25 MG, QHS
     Route: 048
     Dates: start: 20150203
  13. COMBIVENT [Concomitant]
     Active Substance: ALBUTEROL SULFATE\IPRATROPIUM BROMIDE
     Dosage: IPRATROPIUM 18MCG-ALBUTEROL 103MCG (DOSE: 1 TO 2 INHALATION) PRN
     Route: 055
     Dates: start: 20110906
  14. PROZAC [Concomitant]
     Active Substance: FLUOXETINE HYDROCHLORIDE
     Dosage: 40 MG, DAILY
     Route: 048
     Dates: start: 20130507
  15. AMLODIPINE [Concomitant]
     Active Substance: AMLODIPINE BESYLATE
     Dosage: 10 MG, 1X/DAY
     Route: 048
     Dates: start: 20120330
  16. HYDROCODONE/ACETAMINOPHEN [Concomitant]
     Active Substance: ACETAMINOPHEN\HYDROCODONE
     Dosage: HYDROCODONE 10MG -ACETAMINOPHEN 650MG, PRN
     Route: 048
     Dates: start: 20120601
  17. TRAZODONE [Concomitant]
     Active Substance: TRAZODONE HYDROCHLORIDE
     Dosage: 50 MG,AT BEDTIME, AS NEEDED
     Route: 048
     Dates: start: 20140108
  18. ZOCOR [Concomitant]
     Active Substance: SIMVASTATIN
     Dosage: 20 MG, DAILY
     Route: 048
     Dates: start: 20120530
  19. ADVAIR DISKUS [Concomitant]
     Active Substance: FLUTICASONE PROPIONATE\SALMETEROL XINAFOATE
     Dosage: 500-50 MCG//DOSE INHALATION DISK WITH DEVICE AT 1 PUFF, 2X/DAY
     Route: 055
     Dates: start: 20140505
  20. GABAPENTIN. [Concomitant]
     Active Substance: GABAPENTIN
     Dosage: 600 MG, 3X/DAY
     Route: 048
     Dates: start: 20120530

REACTIONS (14)
  - Ventricular tachycardia [Unknown]
  - Cardiac arrest [Fatal]
  - Hypotension [Unknown]
  - Bradycardia [Unknown]
  - Pneumonia [Fatal]
  - Pulmonary hypertension [Unknown]
  - Respiratory failure [Unknown]
  - Lung infiltration [Unknown]
  - Chronic obstructive pulmonary disease [Unknown]
  - Respiratory distress [Unknown]
  - Septic shock [Unknown]
  - Condition aggravated [Unknown]
  - Lactic acidosis [Unknown]
  - Right ventricular failure [Unknown]

NARRATIVE: CASE EVENT DATE: 201505
